FAERS Safety Report 5165383-6 (Version None)
Quarter: 2006Q4

REPORT INFORMATION
  Report Type: 
  Country: None (occurrence: None)
  Receive Date: 20061128
  Receipt Date: 20061116
  Transmission Date: 20070319
  Serious: Yes (Hospitalization, Disabling, Other)
  Sender: FDA-Public Use
  Company Number: 2006140462

PATIENT
  Age: 60 Year
  Sex: Male

DRUGS (4)
  1. FELDENE [Suspect]
     Indication: GOUT
     Dosage: 40 MG (40 MG, SINGLE: PRN), PARENTERAL ; SINGLE: PRN, TOPICAL
     Route: 051
  2. CARDURA [Concomitant]
  3. ASPIRIN [Concomitant]
  4. OMEPRAZOLE [Concomitant]

REACTIONS (4)
  - CEREBROVASCULAR ACCIDENT [None]
  - CONDITION AGGRAVATED [None]
  - DRUG INEFFECTIVE [None]
  - GOUT [None]
